FAERS Safety Report 7095145-4 (Version None)
Quarter: 2010Q4

REPORT INFORMATION
  Report Type: 
  Country: None (occurrence: None)
  Receive Date: 20101111
  Receipt Date: 20101102
  Transmission Date: 20110411
  Serious: No
  Sender: FDA-Public Use
  Company Number: 2010BI004058

PATIENT
  Sex: Male

DRUGS (2)
  1. TYSABRI [Suspect]
     Indication: MULTIPLE SCLEROSIS
     Route: 042
     Dates: start: 20091002
  2. AMPYRA [Concomitant]
     Indication: GAIT DISTURBANCE

REACTIONS (7)
  - ASTHENIA [None]
  - COORDINATION ABNORMAL [None]
  - COUGH [None]
  - FATIGUE [None]
  - GAIT DISTURBANCE [None]
  - MOBILITY DECREASED [None]
  - TREMOR [None]
